FAERS Safety Report 7058568-5 (Version None)
Quarter: 2010Q4

REPORT INFORMATION
  Report Type: 
  Country: None (occurrence: None)
  Receive Date: 20101022
  Receipt Date: 20101014
  Transmission Date: 20110411
  Serious: Yes (Congenital Anomaly)
  Sender: FDA-Public Use
  Company Number: A0873524A

PATIENT
  Sex: Female

DRUGS (4)
  1. PAXIL [Suspect]
     Indication: PRODUCT USED FOR UNKNOWN INDICATION
     Dates: end: 20030130
  2. PHENERGAN [Concomitant]
     Indication: NAUSEA
  3. HYZAAR [Concomitant]
     Dates: end: 20030130
  4. PRENATAL VITAMINS [Concomitant]

REACTIONS (5)
  - CONGENITAL HIP DEFORMITY [None]
  - CRANIOSYNOSTOSIS [None]
  - DRUG EXPOSURE DURING PREGNANCY [None]
  - PLAGIOCEPHALY [None]
  - TORTICOLLIS [None]
